FAERS Safety Report 9071623 (Version 1)
Quarter: 2013Q1

REPORT INFORMATION
  Report Type: Report from Study
  Country: US (occurrence: US)
  Receive Date: 20130129
  Receipt Date: 20130129
  Transmission Date: 20140127
  Serious: No
  Sender: FDA-Public Use
  Company Number: US-ABBOTT-12P-163-0925957-00

PATIENT
  Age: 16 Year
  Sex: Female

DRUGS (8)
  1. HUMIRA 40 MG/ 0.8 ML PRE-FILLED SYRINGE [Suspect]
     Indication: JUVENILE IDIOPATHIC ARTHRITIS
     Dates: start: 20111122
  2. METHOTREXATE [Concomitant]
     Indication: ARTHRITIS
     Dosage: 25MG WEEKLY
  3. FOLIC ACID [Concomitant]
     Indication: SUPPLEMENTATION THERAPY
  4. PIROXICAM [Concomitant]
     Indication: BREAKTHROUGH PAIN
     Dosage: TWICE DAILY AS NEEDED
  5. RANITIDINE [Concomitant]
     Indication: PROPHYLAXIS AGAINST GASTROINTESTINAL ULCER
  6. CLARITIN OTC [Concomitant]
     Indication: HYPERSENSITIVITY
     Dosage: DAILY
  7. ZOVIA PACK [Concomitant]
     Indication: OVARIAN CYST
     Dosage: DAILY
  8. CALCIUM PLUS D [Concomitant]
     Indication: SUPPLEMENTATION THERAPY
     Dosage: 600 MG DAILY

REACTIONS (4)
  - Tendonitis [Recovered/Resolved]
  - Feeling abnormal [Not Recovered/Not Resolved]
  - Oropharyngeal pain [Not Recovered/Not Resolved]
  - Streptococcal infection [Not Recovered/Not Resolved]
